FAERS Safety Report 9742166 (Version 2)
Quarter: 2014Q1

REPORT INFORMATION
  Report Type: Spontaneous
  Country: IT (occurrence: IT)
  Receive Date: 20131210
  Receipt Date: 20140122
  Transmission Date: 20141002
  Serious: Yes (Hospitalization)
  Sender: FDA-Public Use
  Company Number: IT-SA-2013SA124613

PATIENT
  Age: 69 Year
  Sex: Male

DRUGS (2)
  1. ALDACTONE [Suspect]
     Indication: HEPATIC CIRRHOSIS
     Route: 048
     Dates: start: 20131014, end: 20131102
  2. LASIX [Suspect]
     Indication: HEPATIC CIRRHOSIS
     Dosage: STRENGTH: 25 MG
     Route: 048
     Dates: start: 20131014, end: 20131102

REACTIONS (3)
  - Renal failure acute [Recovering/Resolving]
  - Blood creatinine increased [Recovering/Resolving]
  - Dehydration [Recovering/Resolving]
